FAERS Safety Report 15223337 (Version 5)
Quarter: 2018Q4

REPORT INFORMATION
  Report Type: Spontaneous
  Country: US (occurrence: US)
  Receive Date: 20180731
  Receipt Date: 20181010
  Transmission Date: 20190204
  Serious: Yes (Hospitalization)
  Sender: FDA-Public Use
  Company Number: US-ACTELION-A-NJ2018-176459

PATIENT
  Age: 61 Year
  Sex: Female
  Weight: 50.79 kg

DRUGS (2)
  1. ORENITRAM [Concomitant]
     Active Substance: TREPROSTINIL
  2. OPSUMIT [Suspect]
     Active Substance: MACITENTAN
     Indication: PULMONARY ARTERIAL HYPERTENSION
     Dosage: 10 MG, QD
     Route: 048
     Dates: start: 20180405, end: 20180911

REACTIONS (7)
  - General physical health deterioration [Unknown]
  - Diarrhoea [Unknown]
  - Blood potassium decreased [Unknown]
  - Dehydration [Unknown]
  - Weight decreased [Unknown]
  - Vomiting [Unknown]
  - Ulcer [Unknown]

NARRATIVE: CASE EVENT DATE: 201807
